FAERS Safety Report 14558176 (Version 1)
Quarter: 2018Q1

REPORT INFORMATION
  Report Type: Spontaneous
  Country: US (occurrence: US)
  Receive Date: 20180221
  Receipt Date: 20180221
  Transmission Date: 20180509
  Serious: No
  Sender: FDA-Public Use
  Company Number: US-PERRIGO-17US002310

PATIENT
  Age: 78 Year
  Sex: Male

DRUGS (3)
  1. LOPERAMIDE HYDROCHLORIDE. [Suspect]
     Active Substance: LOPERAMIDE HYDROCHLORIDE
     Indication: DIARRHOEA
     Dosage: 1 MG, QD
     Route: 048
     Dates: start: 2015, end: 2017
  2. ANTIHYPERTENSIVES [Concomitant]
     Active Substance: UNSPECIFIED INGREDIENT
     Indication: HYPERTENSION
     Dosage: UNKNOWN, UNKNOWN
     Route: 048
  3. FLOMAX [Concomitant]
     Active Substance: TAMSULOSIN HYDROCHLORIDE
     Indication: PRODUCT USED FOR UNKNOWN INDICATION
     Dosage: UNKNOWN, UNKNOWN
     Route: 048

REACTIONS (4)
  - Intentional product use issue [Recovered/Resolved]
  - Constipation [Recovered/Resolved]
  - Underdose [Recovered/Resolved]
  - Incorrect drug administration duration [Recovered/Resolved]

NARRATIVE: CASE EVENT DATE: 2015
